FAERS Safety Report 7830811-1 (Version None)
Quarter: 2011Q4

REPORT INFORMATION
  Report Type: 
  Country: None (occurrence: None)
  Receive Date: 20111021
  Receipt Date: 20111014
  Transmission Date: 20120403
  Serious: Yes (Hospitalization, Other)
  Sender: FDA-Public Use
  Company Number: JP-GLAXOSMITHKLINE-B0740797A

PATIENT
  Sex: Male
  Weight: 60 kg

DRUGS (12)
  1. NITOROL R [Concomitant]
     Route: 065
  2. ACETAMINOPHEN [Concomitant]
     Route: 065
  3. CONIEL [Concomitant]
     Route: 048
  4. DOXAZOSIN MESYLATE [Concomitant]
     Route: 048
  5. SELTOUCH [Concomitant]
     Route: 061
  6. MUCOSTA [Concomitant]
     Route: 048
  7. MARZULENE [Concomitant]
     Route: 048
  8. VOLTAREN [Concomitant]
     Route: 054
  9. VALTREX [Suspect]
     Indication: HERPES ZOSTER
     Dosage: 1000MG PER DAY
     Route: 048
     Dates: start: 20110813, end: 20110815
  10. ALLOPURINOL [Concomitant]
     Route: 048
  11. TICLOPIDINE HCL [Concomitant]
     Route: 048
  12. METHYCOBAL [Concomitant]
     Route: 048

REACTIONS (4)
  - DYSARTHRIA [None]
  - ALTERED STATE OF CONSCIOUSNESS [None]
  - DELIRIUM [None]
  - HAEMATOMA [None]
